FAERS Safety Report 8273237-1 (Version None)
Quarter: 2012Q2

REPORT INFORMATION
  Report Type: 
  Country: None (occurrence: None)
  Receive Date: 20120411
  Receipt Date: 20120403
  Transmission Date: 20120825
  Serious: Yes (Other)
  Sender: FDA-Public Use
  Company Number: JP-PFIZER INC-2012067790

PATIENT
  Age: 68 Year
  Sex: Male

DRUGS (3)
  1. AZULFIDINE [Suspect]
     Dosage: UNK
  2. LYRICA [Concomitant]
     Dosage: UNK
  3. TOLTERODINE TARTRATE [Concomitant]
     Dosage: UNK

REACTIONS (1)
  - PARKINSON'S DISEASE [None]
